FAERS Safety Report 11919773 (Version 4)
Quarter: 2016Q1

REPORT INFORMATION
  Report Type: Spontaneous
  Country: US (occurrence: US)
  Receive Date: 20160115
  Receipt Date: 20160229
  Transmission Date: 20160526
  Serious: Yes (Hospitalization)
  Sender: FDA-Public Use
  Company Number: US-UNITED THERAPEUTICS-UNT-2016-000127

PATIENT
  Age: 41 Year
  Sex: Female
  Weight: 97.52 kg

DRUGS (3)
  1. REMODULIN [Suspect]
     Active Substance: TREPROSTINIL
     Indication: PULMONARY ARTERIAL HYPERTENSION
     Dosage: 0.047 ?G/KG, CONTINUING
     Route: 041
     Dates: start: 20121116
  2. COUMADIN [Concomitant]
     Active Substance: WARFARIN SODIUM
     Indication: PRODUCT USED FOR UNKNOWN INDICATION
  3. REVATIO [Concomitant]
     Active Substance: SILDENAFIL CITRATE
     Indication: PRODUCT USED FOR UNKNOWN INDICATION

REACTIONS (10)
  - Complication associated with device [Recovered/Resolved]
  - Face oedema [Unknown]
  - Device dislocation [Unknown]
  - Injection site haemorrhage [Unknown]
  - Malaise [Unknown]
  - Drug dose omission [Unknown]
  - Dyspnoea [Unknown]
  - Thrombosis [Unknown]
  - Wheezing [Unknown]
  - Oedema peripheral [Unknown]

NARRATIVE: CASE EVENT DATE: 201601
